FAERS Safety Report 7444425-9 (Version None)
Quarter: 2011Q2

REPORT INFORMATION
  Report Type: 
  Country: None (occurrence: None)
  Receive Date: 20110419
  Receipt Date: 20110408
  Transmission Date: 20111010
  Serious: Yes (Death, Other)
  Sender: FDA-Public Use
  Company Number: 115479

PATIENT
  Age: 27 Year
  Sex: Male

DRUGS (2)
  1. BUPRENORPHINE HCL [Suspect]
  2. ALCOHOL [Concomitant]

REACTIONS (12)
  - BLOOD ALCOHOL INCREASED [None]
  - ASPHYXIA [None]
  - VISCERAL CONGESTION [None]
  - PULMONARY OEDEMA [None]
  - HEPATIC CONGESTION [None]
  - MEDICATION ERROR [None]
  - DRUG ABUSE [None]
  - SPLEEN CONGESTION [None]
  - OVERDOSE [None]
  - INCORRECT ROUTE OF DRUG ADMINISTRATION [None]
  - RESPIRATORY DEPRESSION [None]
  - PULMONARY CONGESTION [None]
